FAERS Safety Report 9800715 (Version 3)
Quarter: 2014Q1

REPORT INFORMATION
  Report Type: Spontaneous
  Country: US (occurrence: US)
  Receive Date: 20140107
  Receipt Date: 20140205
  Transmission Date: 20141002
  Serious: Yes (Death, Hospitalization)
  Sender: FDA-Public Use
  Company Number: US-SHIRE-ALL1-2014-00019

PATIENT
  Age: 74 Year
  Sex: Male
  Weight: 63.49 kg

DRUGS (1)
  1. FOSRENOL [Suspect]
     Indication: PRODUCT USED FOR UNKNOWN INDICATION
     Dosage: 1000 MG, OTHER (2 WITH BREAKFAST; 2 WITH LUNCH, 3 WITH DINNER)
     Route: 048

REACTIONS (3)
  - Myocardial infarction [Fatal]
  - Fall [Recovered/Resolved]
  - Prescribed overdose [Unknown]
